FAERS Safety Report 6914054-1 (Version None)
Quarter: 2010Q3

REPORT INFORMATION
  Report Type: 
  Country: None (occurrence: None)
  Receive Date: 20100809
  Receipt Date: 20100803
  Transmission Date: 20110219
  Serious: Yes (Death, Life-Threatening, Hospitalization)
  Sender: FDA-Public Use
  Company Number: PHFR2006GB03502

PATIENT
  Sex: Female

DRUGS (15)
  1. CLOZARIL [Suspect]
     Indication: SCHIZOPHRENIA
     Route: 048
     Dates: start: 19951006
  2. CLOZARIL [Suspect]
     Route: 048
     Dates: start: 19951006, end: 19000101
  3. PANTOPRAZOLE [Concomitant]
     Route: 065
  4. PHENYTOIN [Concomitant]
     Route: 042
  5. HYDROCORTISONE [Concomitant]
     Route: 042
  6. TAZOCIN [Concomitant]
     Route: 065
  7. PROPOFOL [Concomitant]
     Route: 065
  8. ALFENTANIL [Concomitant]
     Route: 065
  9. NORADRENALINE [Concomitant]
     Route: 065
  10. ACTRAPID HUMAN [Concomitant]
     Route: 065
  11. NIMODIPINE [Concomitant]
     Route: 065
  12. VASOPRESSIN AND ANALOGUES [Concomitant]
     Route: 065
  13. DOBUTAMINE HCL [Concomitant]
     Route: 065
  14. SIMVASTATIN [Concomitant]
     Route: 065
  15. VALPROATE SODIUM [Concomitant]
     Route: 065

REACTIONS (11)
  - APALLIC SYNDROME [None]
  - APHASIA [None]
  - DEATH [None]
  - FEEDING DISORDER [None]
  - GASTROINTESTINAL TUBE INSERTION [None]
  - HAEMORRHAGE [None]
  - INTRACRANIAL ANEURYSM [None]
  - LOWER RESPIRATORY TRACT INFECTION [None]
  - MOVEMENT DISORDER [None]
  - POST PROCEDURAL HAEMORRHAGE [None]
  - SURGERY [None]
